FAERS Safety Report 17110438 (Version 1)
Quarter: 2019Q4

REPORT INFORMATION
  Report Type: Spontaneous
  Country: US (occurrence: US)
  Receive Date: 20191108
  Receipt Date: 20191108
  Transmission Date: 20200122
  Serious: Yes (Hospitalization)
  Sender: FDA-Public Use
  Company Number: None

PATIENT
  Age: 56 Year
  Sex: Female

DRUGS (3)
  1. ROGAINE MENS ARE EXTRA ST [Concomitant]
  2. VITAMIN B [Concomitant]
     Active Substance: VITAMIN B
  3. HUMIRA [Suspect]
     Active Substance: ADALIMUMAB
     Indication: RHEUMATOID ARTHRITIS
     Dosage: ?          OTHER DOSE:40MG/0.4ML PEN;OTHER FREQUENCY:Q 10 DAYS;?
     Route: 058
     Dates: start: 20181114

REACTIONS (3)
  - Wrist surgery [None]
  - Limb operation [None]
  - Elbow operation [None]

NARRATIVE: CASE EVENT DATE: 20190918
